FAERS Safety Report 20978348 (Version 3)
Quarter: 2022Q4

REPORT INFORMATION
  Report Type: Spontaneous
  Country: US (occurrence: US)
  Receive Date: 20220618
  Receipt Date: 20221201
  Transmission Date: 20230113
  Serious: No
  Sender: FDA-Public Use
  Company Number: US-SA-SAC20220613001558

PATIENT
  Age: 85 Year
  Sex: Female

DRUGS (1)
  1. DUPIXENT [Suspect]
     Active Substance: DUPILUMAB
     Dosage: 300 MG, OTHER
     Route: 058
     Dates: start: 202203

REACTIONS (8)
  - Hyperaesthesia teeth [Not Recovered/Not Resolved]
  - Gingival discomfort [Not Recovered/Not Resolved]
  - Glossitis [Unknown]
  - Gingivitis [Unknown]
  - Gingival bleeding [Unknown]
  - Toothache [Unknown]
  - Tongue ulceration [Unknown]
  - Mouth ulceration [Unknown]

NARRATIVE: CASE EVENT DATE: 20220101
